FAERS Safety Report 4471241-2 (Version None)
Quarter: 2004Q4

REPORT INFORMATION
  Report Type: 
  Country: None (occurrence: None)
  Receive Date: 20041011
  Receipt Date: 20041003
  Transmission Date: 20050328
  Serious: Yes (Other)
  Sender: FDA-Public Use
  Company Number: CA-MERCK-0410CAN00107

PATIENT
  Sex: Female

DRUGS (2)
  1. [THERAPY UNSPECIFIED] [Concomitant]
     Indication: CARDIAC DISORDER
     Route: 065
  2. VIOXX [Suspect]
     Route: 048
     Dates: start: 19990101, end: 20040901

REACTIONS (1)
  - MYOCARDIAL INFARCTION [None]
